FAERS Safety Report 5895458-5 (Version None)
Quarter: 2008Q3

REPORT INFORMATION
  Report Type: 
  Country: None (occurrence: None)
  Receive Date: 20080923
  Receipt Date: 20080923
  Transmission Date: 20090109
  Serious: Yes (Hospitalization)
  Sender: FDA-Public Use
  Company Number: None

PATIENT
  Sex: Female
  Weight: 71.7 kg

DRUGS (8)
  1. WARFARIN SODIUM [Suspect]
     Indication: ATRIAL FIBRILLATION
     Dosage: BASED ON INR DAILY PO
     Route: 048
  2. VALSARTAN [Concomitant]
  3. DILTIAZEM HCL [Concomitant]
  4. CITALOPRAM [Concomitant]
  5. SERTRALINE [Concomitant]
  6. ASPIRIN [Concomitant]
  7. SLIDING SCALE INSULIN [Concomitant]
  8. METOCLOPRAMIDE [Concomitant]

REACTIONS (2)
  - DUODENAL ULCER HAEMORRHAGE [None]
  - INTERNATIONAL NORMALISED RATIO INCREASED [None]
